FAERS Safety Report 6060223-5 (Version None)
Quarter: 2009Q1

REPORT INFORMATION
  Report Type: 
  Country: None (occurrence: None)
  Receive Date: 20090129
  Receipt Date: 20090121
  Transmission Date: 20090719
  Serious: Yes (Hospitalization)
  Sender: FDA-Public Use
  Company Number: PAR_02735_2009

PATIENT
  Age: 34 Year
  Sex: Female

DRUGS (7)
  1. CHOLESTYRAMINE [Suspect]
     Indication: HEPATITIS
     Dosage: 8 G TID
  2. LEFLUNOMIDE [Suspect]
     Indication: STILL'S DISEASE ADULT ONSET
     Dosage: 20 MG
  3. ACETAMINOPHEN WITH PROPOXYPHENE HCL TAB [Concomitant]
  4. PREDNISONE [Concomitant]
  5. NICARDIPINE HYDROCHLORIDE [Concomitant]
  6. CANDESARTAN [Concomitant]
  7. CALCIUM CARBONATE W/COLECALCIFEROL [Concomitant]

REACTIONS (5)
  - CHOLESTASIS [None]
  - HEPATITIS FULMINANT [None]
  - HEPATOTOXICITY [None]
  - SERUM FERRITIN INCREASED [None]
  - VITAMIN K DEFICIENCY [None]
